FAERS Safety Report 8362914-X (Version None)
Quarter: 2012Q2

REPORT INFORMATION
  Report Type: 
  Country: None (occurrence: None)
  Receive Date: 20120514
  Receipt Date: 20120501
  Transmission Date: 20120825
  Serious: Yes (Other)
  Sender: FDA-Public Use
  Company Number: 2011MA002952

PATIENT
  Sex: Female

DRUGS (21)
  1. NASONEX [Concomitant]
  2. BYSTOLIC [Concomitant]
  3. ZETIA [Concomitant]
  4. AMBIEN [Concomitant]
  5. ZOLPIDEM [Concomitant]
  6. METHADONE HCL [Concomitant]
  7. BENICAR [Concomitant]
  8. LORAZEPAM [Concomitant]
  9. PROCHLORPERAZINE [Concomitant]
  10. PREMARIN [Concomitant]
  11. NORTRIPTYLINE HCL [Concomitant]
  12. RANITIDINE [Concomitant]
  13. METOCLOPRAMIDE [Suspect]
     Dosage: 10 MG; 30 MIN AC + HS; PO
     Route: 048
     Dates: start: 20091105, end: 20100811
  14. FEXOFENADINE [Concomitant]
  15. VITAMIN D [Concomitant]
  16. BUTALBITAL ACETAMINOPHEN AND CAFFEINE [Concomitant]
  17. ALPRAZOLAM [Concomitant]
  18. HYDROCODONE BITARTRATE AND ACETAMINOPHEN [Concomitant]
  19. SEROQUEL [Concomitant]
  20. ZANAFLEX [Concomitant]
  21. SERTRALINE HYDROCHLORIDE [Concomitant]

REACTIONS (8)
  - DYSTONIA [None]
  - AKATHISIA [None]
  - EXTRAPYRAMIDAL DISORDER [None]
  - EMOTIONAL DISORDER [None]
  - TARDIVE DYSKINESIA [None]
  - ECONOMIC PROBLEM [None]
  - TREMOR [None]
  - FAMILY STRESS [None]
